FAERS Safety Report 9742285 (Version 3)
Quarter: 2013Q4

REPORT INFORMATION
  Report Type: Spontaneous
  Country: US (occurrence: US)
  Receive Date: 20131210
  Receipt Date: 20131227
  Transmission Date: 20140711
  Serious: Yes (Hospitalization, Other)
  Sender: FDA-Public Use
  Company Number: US-PFIZER INC-2013257005

PATIENT
  Age: 64 Year
  Sex: Male
  Weight: 54.42 kg

DRUGS (2)
  1. VIAGRA [Suspect]
     Indication: PROSTATIC DISORDER
     Dosage: UNK, 2-3 TIMES A WEEK
     Dates: start: 2012
  2. VALIUM [Concomitant]
     Dosage: 10 MG, 4X/DAY

REACTIONS (9)
  - Pneumonia [Unknown]
  - Neoplasm malignant [Unknown]
  - Cerebrovascular accident [Unknown]
  - Prostate cancer [Unknown]
  - Back disorder [Unknown]
  - Musculoskeletal disorder [Unknown]
  - Gastrointestinal disorder [Unknown]
  - Bladder disorder [Unknown]
  - Off label use [Unknown]
